FAERS Safety Report 22246359 (Version 1)
Quarter: 2023Q2

REPORT INFORMATION
  Report Type: Spontaneous
  Country: PK (occurrence: PK)
  Receive Date: 20230424
  Receipt Date: 20230424
  Transmission Date: 20230721
  Serious: Yes (Other)
  Sender: FDA-Public Use
  Company Number: PK-PFIZER INC-PV202300069756

PATIENT
  Age: 75 Year
  Sex: Male

DRUGS (4)
  1. SUTENT [Suspect]
     Active Substance: SUNITINIB MALATE
     Indication: Renal cell carcinoma stage IV
     Dosage: 50 MG, CYCLIC(4 WEEKS ON 2 WEEKS OF)
     Dates: start: 20230218
  2. SUTENT [Suspect]
     Active Substance: SUNITINIB MALATE
     Dosage: 37.5 MG, CYCLIC(EVERY OTHER DAY 4 WEEKS ON 2 WEEKS OFF)
  3. DECADRON [Concomitant]
     Active Substance: DEXAMETHASONE
     Dosage: 8 MG IN 100ML N. SODIUM, IV, LIMIT/DAY X 1 WEEK
     Route: 042
  4. TOPNEUTER [Concomitant]
     Dosage: 300 UG IN THE SKIN, LIMIT/ WEEK X 1 MONTH

REACTIONS (10)
  - Gamma-glutamyltransferase increased [Unknown]
  - Blood creatine increased [Unknown]
  - Blood triglycerides increased [Unknown]
  - Very low density lipoprotein increased [Unknown]
  - Blood alkaline phosphatase increased [Unknown]
  - Blood albumin decreased [Unknown]
  - High density lipoprotein decreased [Unknown]
  - Blood sodium decreased [Unknown]
  - Blood bilirubin increased [Unknown]
  - Product prescribing error [Unknown]

NARRATIVE: CASE EVENT DATE: 20230403
